FAERS Safety Report 6436918-8 (Version None)
Quarter: 2009Q4

REPORT INFORMATION
  Report Type: 
  Country: None (occurrence: None)
  Receive Date: 20091109
  Receipt Date: 20091102
  Transmission Date: 20100525
  Serious: Yes (Hospitalization)
  Sender: FDA-Public Use
  Company Number: WAES 0907USA00306

PATIENT
  Age: 73 Year
  Sex: Male

DRUGS (9)
  1. CAP VORINOSTAT [Suspect]
     Indication: MULTIPLE MYELOMA
     Dosage: 400 MG PO
     Route: 048
     Dates: start: 20090526, end: 20090714
  2. BORTEZOMIB [Suspect]
     Indication: MULTIPLE MYELOMA
     Dosage: 2.11 MG IV; 2.17 MG; 1.631 MG;
     Route: 042
     Dates: start: 20090526, end: 20090605
  3. BORTEZOMIB [Suspect]
     Indication: MULTIPLE MYELOMA
     Dosage: 2.11 MG IV; 2.17 MG; 1.631 MG;
     Route: 042
     Dates: start: 20090616, end: 20090626
  4. BORTEZOMIB [Suspect]
     Indication: MULTIPLE MYELOMA
     Dosage: 2.11 MG IV; 2.17 MG; 1.631 MG;
     Route: 042
     Dates: start: 20090707, end: 20090717
  5. AUGMENTIN [Concomitant]
  6. ESOMEZOL (ESOMEPRAZOLE MAGNEISUM) [Concomitant]
  7. OXYCONTIN [Concomitant]
  8. PROAMIN [Concomitant]
  9. TRESTAN [Concomitant]

REACTIONS (6)
  - ASTHENIA [None]
  - CHRONIC OBSTRUCTIVE PULMONARY DISEASE [None]
  - DYSPNOEA [None]
  - RENAL FAILURE [None]
  - SYNCOPE [None]
  - VOMITING [None]
